FAERS Safety Report 9263272 (Version 1)
Quarter: 2013Q2

REPORT INFORMATION
  Report Type: Spontaneous
  Country: US (occurrence: None)
  Receive Date: 20130429
  Receipt Date: 20130429
  Transmission Date: 20140414
  Serious: Yes (Hospitalization, Other)
  Sender: FDA-Public Use
  Company Number: None

PATIENT
  Age: 49 Year
  Sex: Female
  Weight: 72.12 kg

DRUGS (1)
  1. BOTOX [Suspect]
     Indication: TEMPOROMANDIBULAR JOINT SYNDROME
     Dosage: 130 UNITS 1X (15 SHOTS) SQ
     Route: 058
     Dates: start: 20130321

REACTIONS (10)
  - Headache [None]
  - Vision blurred [None]
  - Neck pain [None]
  - Muscle twitching [None]
  - Extrasystoles [None]
  - Insomnia [None]
  - Sinus tachycardia [None]
  - Erythema [None]
  - Drug ineffective [None]
  - Wrong technique in drug usage process [None]
